FAERS Safety Report 23269288 (Version 1)
Quarter: 2023Q4

REPORT INFORMATION
  Report Type: Spontaneous
  Country: US (occurrence: US)
  Receive Date: 20231207
  Receipt Date: 20231207
  Transmission Date: 20240110
  Serious: No
  Sender: FDA-Public Use
  Company Number: US-drreddys-SPO/USA/23/0187228

PATIENT
  Age: 82 Year
  Sex: Female

DRUGS (1)
  1. CLONIDINE TRANSDERMAL SYSTEM [Suspect]
     Active Substance: CLONIDINE
     Indication: Hypertension
     Dates: start: 20231022

REACTIONS (5)
  - Pruritus [Unknown]
  - Anxiety [Unknown]
  - Constipation [Unknown]
  - Headache [Unknown]
  - Expired product administered [Unknown]
